FAERS Safety Report 8959739 (Version 1)
Quarter: 2012Q4

REPORT INFORMATION
  Report Type: 
  Country: US (occurrence: US)
  Receive Date: 20121212
  Receipt Date: 20121212
  Transmission Date: 20130627
  Serious: Yes (Hospitalization)
  Sender: FDA-Public Use
  Company Number: US-009507513-1106USA02107

PATIENT
  Age: 61 Year
  Sex: Female
  Weight: 89.8 kg

DRUGS (5)
  1. JANUVIA [Suspect]
     Route: 048
  2. ACTOS [Suspect]
     Indication: DIABETES MELLITUS
     Dosage: 45 mg, qd
     Dates: end: 20110301
  3. METFORMIN [Suspect]
  4. STARLIX [Suspect]
  5. GLIMEPIRIDE [Suspect]

REACTIONS (3)
  - Renal injury [Unknown]
  - Blood glucose increased [Unknown]
  - Oedema peripheral [Unknown]
